FAERS Safety Report 7105007-1 (Version None)
Quarter: 2010Q4

REPORT INFORMATION
  Report Type: 
  Country: None (occurrence: None)
  Receive Date: 20101110
  Receipt Date: 20101027
  Transmission Date: 20110411
  Serious: Yes (Hospitalization)
  Sender: FDA-Public Use
  Company Number: ALA_01061_2010

PATIENT
  Age: 20 Year
  Sex: Female

DRUGS (3)
  1. MESALAMINE [Suspect]
     Indication: CROHN'S DISEASE
     Dosage: DF ORAL
     Route: 048
  2. PURINETHOL [Suspect]
     Indication: CROHN'S DISEASE
     Dosage: DF
  3. CIMZIA [Suspect]
     Indication: CROHN'S DISEASE
     Dosage: DF
     Dates: start: 20081201

REACTIONS (7)
  - APLASTIC ANAEMIA [None]
  - BONE MARROW FAILURE [None]
  - FAECAL INCONTINENCE [None]
  - FEBRILE NEUTROPENIA [None]
  - NAUSEA [None]
  - PYREXIA [None]
  - VOMITING [None]
